FAERS Safety Report 21047109 (Version 1)
Quarter: 2022Q3

REPORT INFORMATION
  Report Type: Spontaneous
  Country: CN (occurrence: None)
  Receive Date: 20220706
  Receipt Date: 20220706
  Transmission Date: 20221027
  Serious: Yes (Hospitalization)
  Sender: FDA-Public Use
  Company Number: 2022A240858

PATIENT
  Age: 76 Year
  Sex: Male

DRUGS (1)
  1. OSIMERTINIB MESYLATE [Suspect]
     Active Substance: OSIMERTINIB MESYLATE
     Indication: Chemotherapy
     Route: 048
     Dates: start: 20220602, end: 20220621

REACTIONS (1)
  - Hepatic function abnormal [Unknown]

NARRATIVE: CASE EVENT DATE: 20220621
